FAERS Safety Report 5006420-9 (Version None)
Quarter: 2006Q2

REPORT INFORMATION
  Report Type: 
  Country: None (occurrence: None)
  Receive Date: 20060516
  Receipt Date: 20060505
  Transmission Date: 20061013
  Serious: Yes (Hospitalization)
  Sender: FDA-Public Use
  Company Number: 2006US000945

PATIENT
  Age: 85 Year
  Sex: Female

DRUGS (9)
  1. VESICARE [Suspect]
     Indication: URINARY INCONTINENCE
     Dosage: 5 MG, ORAL
     Route: 048
     Dates: start: 20060415, end: 20060429
  2. COZAAR [Concomitant]
  3. DIGOXIN [Concomitant]
  4. FUROSEMIDE (FUROSEMIDE SODIUM) [Concomitant]
  5. SYNTHROID [Concomitant]
  6. ASPIRIN [Concomitant]
  7. VITAMIN E (HERBAL OIL NOS) [Concomitant]
  8. CALCIUM (ASCORBIC ACID) [Concomitant]
  9. ANTIBIOTICS [Concomitant]

REACTIONS (1)
  - CHEST PAIN [None]
